FAERS Safety Report 7664217-5 (Version None)
Quarter: 2011Q3

REPORT INFORMATION
  Report Type: 
  Country: None (occurrence: None)
  Receive Date: 20110806
  Receipt Date: 20110114
  Transmission Date: 20111222
  Serious: No
  Sender: FDA-Public Use
  Company Number: US-ABBOTT-11P-163-0697610-00

PATIENT
  Sex: Male
  Weight: 103.51 kg

DRUGS (1)
  1. NIASPAN [Suspect]
     Indication: HYPERLIPIDAEMIA

REACTIONS (3)
  - ADVERSE DRUG REACTION [None]
  - HOT FLUSH [None]
  - BURNING SENSATION [None]
